FAERS Safety Report 16799570 (Version 2)
Quarter: 2019Q4

REPORT INFORMATION
  Report Type: Report from Study
  Country: CO (occurrence: CO)
  Receive Date: 20190912
  Receipt Date: 20191022
  Transmission Date: 20200122
  Serious: Yes (Hospitalization, Other)
  Sender: FDA-Public Use
  Company Number: PHHY2019CO119135

PATIENT
  Sex: Female
  Weight: 40 kg

DRUGS (5)
  1. KISQALI [Suspect]
     Active Substance: RIBOCICLIB
     Indication: METASTASES TO LUNG
     Dosage: 600 MG, QD
     Route: 048
     Dates: start: 20190809
  2. FEMARA [Suspect]
     Active Substance: LETROZOLE
     Indication: BREAST CANCER METASTATIC
     Dosage: 2.5 MG, QD
     Route: 048
     Dates: start: 20190521
  3. GAVISCON [Concomitant]
     Active Substance: ALUMINUM HYDROXIDE\MAGNESIUM CARBONATE
     Indication: GASTRIC ULCER
     Route: 065
  4. FEMARA [Suspect]
     Active Substance: LETROZOLE
     Indication: METASTASES TO LUNG
     Dosage: 2.5 MG, QD
     Route: 048
     Dates: start: 20190809
  5. KISQALI [Suspect]
     Active Substance: RIBOCICLIB
     Indication: BREAST CANCER METASTATIC
     Dosage: 600 MG, QD
     Route: 048
     Dates: start: 20190521

REACTIONS (4)
  - Dyspnoea [Unknown]
  - Pericardial effusion [Unknown]
  - Pleural effusion [Unknown]
  - Vomiting [Unknown]
